FAERS Safety Report 7132289-2 (Version None)
Quarter: 2010Q4

REPORT INFORMATION
  Report Type: 
  Country: None (occurrence: None)
  Receive Date: 20101202
  Receipt Date: 20101119
  Transmission Date: 20110411
  Serious: Yes (Other)
  Sender: FDA-Public Use
  Company Number: PHHY2010US79364

PATIENT
  Sex: Female

DRUGS (1)
  1. GLEEVEC [Suspect]
     Indication: CHRONIC MYELOID LEUKAEMIA
     Dosage: 300 MG, QD
     Route: 048
     Dates: start: 20090901

REACTIONS (6)
  - AMNESIA [None]
  - ANAEMIA [None]
  - DECREASED APPETITE [None]
  - INSOMNIA [None]
  - NAUSEA [None]
  - TINNITUS [None]
